FAERS Safety Report 11101175 (Version 2)
Quarter: 2015Q2

REPORT INFORMATION
  Report Type: Spontaneous
  Country: ID (occurrence: ID)
  Receive Date: 20150508
  Receipt Date: 20150522
  Transmission Date: 20150821
  Serious: No
  Sender: FDA-Public Use
  Company Number: ID-PFIZER INC-2015154330

PATIENT

DRUGS (1)
  1. ZITHROMAX [Suspect]
     Active Substance: AZITHROMYCIN DIHYDRATE
     Indication: OROPHARYNGEAL PAIN
     Dosage: 1 DF, SINGLE
     Route: 048

REACTIONS (3)
  - Lethargy [Recovered/Resolved]
  - Heart rate increased [Recovered/Resolved]
  - Vomiting [Recovered/Resolved]
